FAERS Safety Report 9119822 (Version 1)
Quarter: 2013Q1

REPORT INFORMATION
  Report Type: Report from Study
  Country: CA (occurrence: CA)
  Receive Date: 20130226
  Receipt Date: 20130226
  Transmission Date: 20140127
  Serious: Yes (Hospitalization)
  Sender: FDA-Public Use
  Company Number: CA-JNJFOC-20130209027

PATIENT
  Sex: Female
  Weight: 52.6 kg

DRUGS (9)
  1. REMICADE [Suspect]
     Indication: CROHN^S DISEASE
     Dosage: 70 INFUSION
     Route: 042
  2. LOMOTIL [Concomitant]
     Route: 065
  3. ENTOCORT [Concomitant]
     Route: 065
  4. ATIVAN [Concomitant]
     Route: 065
  5. LENOLTEC NOS [Concomitant]
     Route: 065
  6. VITAMIN B12 [Concomitant]
     Route: 050
  7. CITALOPRAM [Concomitant]
     Route: 065
  8. ADALAT [Concomitant]
     Route: 065
  9. CYPROHEPTADINE [Concomitant]
     Route: 065

REACTIONS (1)
  - Nephrolithiasis [Unknown]
